FAERS Safety Report 7146217-7 (Version None)
Quarter: 2010Q4

REPORT INFORMATION
  Report Type: 
  Country: None (occurrence: None)
  Receive Date: 20101208
  Receipt Date: 20101120
  Transmission Date: 20110411
  Serious: No
  Sender: FDA-Public Use
  Company Number: US-B.I. PHARMACEUTICALS,INC./RIDGEFIELD-2010-BP-13108BP

PATIENT
  Sex: Male
  Weight: 78.02 kg

DRUGS (5)
  1. PRADAXA [Suspect]
     Indication: ATRIAL FIBRILLATION
     Dosage: 300 MG
     Route: 048
     Dates: start: 20101120
  2. TRILIPIX [Concomitant]
     Indication: HYPERTRIGLYCERIDAEMIA
  3. ALLOPURINOL [Concomitant]
     Indication: GOUT
  4. ATENOLOL [Concomitant]
     Indication: HYPERTENSION
  5. DIGOXIN [Concomitant]

REACTIONS (2)
  - ABDOMINAL DISCOMFORT [None]
  - ERUCTATION [None]
